FAERS Safety Report 17107519 (Version 1)
Quarter: 2019Q4

REPORT INFORMATION
  Report Type: Spontaneous
  Country: CN (occurrence: CN)
  Receive Date: 20191204
  Receipt Date: 20191204
  Transmission Date: 20200122
  Serious: Yes (Death, Other)
  Sender: FDA-Public Use
  Company Number: CN-ASTRAZENECA-2019SF71898

PATIENT

DRUGS (1)
  1. TAGRISSO [Suspect]
     Active Substance: OSIMERTINIB
     Route: 048

REACTIONS (3)
  - Disease recurrence [Unknown]
  - Drug resistance [Unknown]
  - Death [Fatal]
